FAERS Safety Report 5985942-8 (Version None)
Quarter: 2008Q4

REPORT INFORMATION
  Report Type: 
  Country: None (occurrence: None)
  Receive Date: 20081205
  Receipt Date: 20081205
  Transmission Date: 20090506
  Serious: Yes (Life-Threatening, Hospitalization, Other)
  Sender: FDA-Public Use
  Company Number: None

PATIENT
  Age: 50 Year
  Sex: Female
  Weight: 90.7194 kg

DRUGS (1)
  1. CIPROFLOXACIN [Suspect]
     Indication: DIVERTICULITIS
     Dosage: 1 500 MG TABLET TWICE DAILY PO
     Route: 048
     Dates: start: 20080711, end: 20080717

REACTIONS (21)
  - ACTIVITIES OF DAILY LIVING IMPAIRED [None]
  - ARTHRALGIA [None]
  - ARTHRITIS [None]
  - DRUG HYPERSENSITIVITY [None]
  - ERYTHEMA [None]
  - FIBROMYALGIA [None]
  - HYPERSENSITIVITY [None]
  - HYPOAESTHESIA [None]
  - MULTI-ORGAN DISORDER [None]
  - MUSCLE TWITCHING [None]
  - MUSCULAR WEAKNESS [None]
  - MYALGIA [None]
  - PALPITATIONS [None]
  - PAROSMIA [None]
  - PRODUCT QUALITY ISSUE [None]
  - RESTLESSNESS [None]
  - SLEEP DISORDER [None]
  - SPINAL CORD DISORDER [None]
  - TENDON PAIN [None]
  - TINNITUS [None]
  - VISION BLURRED [None]
